FAERS Safety Report 8043602-6 (Version None)
Quarter: 2012Q1

REPORT INFORMATION
  Report Type: 
  Country: None (occurrence: None)
  Receive Date: 20120112
  Receipt Date: 20120105
  Transmission Date: 20120608
  Serious: Yes (Hospitalization)
  Sender: FDA-Public Use
  Company Number: JP-BAXTER-2012BH000767

PATIENT
  Age: 78 Year
  Sex: Female

DRUGS (3)
  1. DACARBAZINE [Suspect]
     Indication: MALIGNANT SOFT TISSUE NEOPLASM
     Route: 041
     Dates: start: 20111220, end: 20111222
  2. PINORUBIN [Suspect]
     Indication: MALIGNANT SOFT TISSUE NEOPLASM
     Route: 041
     Dates: start: 20111220, end: 20111222
  3. IFOSFAMIDE [Suspect]
     Indication: MALIGNANT SOFT TISSUE NEOPLASM
     Route: 041
     Dates: start: 20111220, end: 20111222

REACTIONS (2)
  - ENCEPHALOPATHY [None]
  - INAPPROPRIATE ANTIDIURETIC HORMONE SECRETION [None]
